FAERS Safety Report 5514439-4 (Version None)
Quarter: 2007Q4

REPORT INFORMATION
  Report Type: 
  Country: None (occurrence: None)
  Receive Date: 20071113
  Receipt Date: 20070521
  Transmission Date: 20080405
  Serious: No
  Sender: FDA-Public Use
  Company Number: A0652156A

PATIENT
  Age: 85 Year
  Sex: Female

DRUGS (8)
  1. COREG [Suspect]
     Indication: HYPERTENSION
     Dosage: 12.5MG TWICE PER DAY
     Route: 048
  2. UNKNOWN MEDICATION [Concomitant]
  3. FUROSEMIDE [Concomitant]
  4. LEVOTHYROXINE SODIUM [Concomitant]
  5. CATAPRES [Concomitant]
  6. ALLOPURINOL [Concomitant]
  7. PLAVIX [Concomitant]
  8. NEXIUM [Concomitant]

REACTIONS (1)
  - WEIGHT INCREASED [None]
